FAERS Safety Report 11353686 (Version 1)
Quarter: 2015Q3

REPORT INFORMATION
  Report Type: Spontaneous
  Country: US (occurrence: US)
  Receive Date: 20150807
  Receipt Date: 20150807
  Transmission Date: 20151125
  Serious: No
  Sender: FDA-Public Use
  Company Number: US-JNJFOC-20141204139

PATIENT
  Age: 64 Year
  Sex: Female
  Weight: 49.9 kg

DRUGS (21)
  1. L-GLUTAMINE [Concomitant]
     Indication: GASTRIC DISORDER
     Dosage: FROM 5-7 YEARS
     Route: 065
  2. VITAMIN B12 [Concomitant]
     Active Substance: CYANOCOBALAMIN
     Dosage: FROM 3 YEARS
     Route: 065
  3. ARMOUR THYROID [Concomitant]
     Active Substance: THYROID, PORCINE\THYROID, UNSPECIFIED
     Indication: THYROID DISORDER
     Route: 065
  4. WOMENS ROGAINE EXTRA STRENGTH [Suspect]
     Active Substance: MINOXIDIL
     Indication: HAIR GROWTH ABNORMAL
     Dosage: HALF-FULL CAPFUL
     Route: 061
     Dates: end: 20141129
  5. BIOTIN [Concomitant]
     Active Substance: BIOTIN
     Indication: NAIL DISORDER
     Dosage: FOR 2 YEARS
     Route: 065
  6. LICORICE ROOT EXTRACT [Concomitant]
     Active Substance: LICORICE ROOT EXTRACT
     Indication: GASTRIC DISORDER
     Dosage: FROM 5 YEARS
     Route: 065
  7. FOLATE [Concomitant]
     Active Substance: FOLATE SODIUM
     Indication: BONE DISORDER
     Dosage: FROM 2.5-3 YEARS
     Route: 065
  8. OMEGA 3 [Concomitant]
     Active Substance: OMEGA-3 FATTY ACIDS
     Indication: ARTHROPATHY
     Dosage: FROM 2 YEARS
     Route: 065
  9. VITAMIN K2 [Concomitant]
     Active Substance: MENAQUINONE 6
     Indication: BONE DISORDER
     Dosage: FROM 2 YEARS
     Route: 065
  10. ZINC [Concomitant]
     Active Substance: ZINC\ZINC CHLORIDE
     Indication: UNEVALUABLE EVENT
     Dosage: FROM 3 YEARS
     Route: 065
  11. GLUCOSAMINE + CHONDROITIN COMBO [Concomitant]
     Indication: ARTHROPATHY
     Dosage: FROM 2 YEARS
     Route: 065
  12. HORMONE REPLACEMENT THERAPY [Concomitant]
     Active Substance: UNSPECIFIED INGREDIENT
     Indication: HORMONE REPLACEMENT THERAPY
     Dosage: DAILY FROM 2 YEARS
     Route: 065
  13. POTASSIUM [Concomitant]
     Active Substance: POTASSIUM
     Indication: MUSCLE DISORDER
     Dosage: FROM 1.5 YEARS
     Route: 065
  14. WOMENS ROGAINE EXTRA STRENGTH [Suspect]
     Active Substance: MINOXIDIL
     Route: 061
  15. FOLATE [Concomitant]
     Active Substance: FOLATE SODIUM
     Indication: MENTAL IMPAIRMENT
     Dosage: FROM 2.5-3 YEARS
     Route: 065
  16. DHEA [Concomitant]
     Active Substance: PRASTERONE
     Indication: METABOLIC DISORDER
     Dosage: FROM 2-3 YEARS
     Route: 065
  17. PYCNOGENOL [Concomitant]
     Active Substance: DIETARY SUPPLEMENT
     Indication: VASCULAR MALFORMATION
     Dosage: FROM 2.5 YEARS
     Route: 065
  18. VITAMIN D [Concomitant]
     Active Substance: CHOLECALCIFEROL
     Indication: ROUTINE HEALTH MAINTENANCE
     Dosage: 2000 UNITS FROM 3 YEARS
     Route: 065
  19. MAGNESIUM [Concomitant]
     Active Substance: MAGNESIUM
     Indication: ARTHROPATHY
     Dosage: FROM 3 YEARS
     Route: 065
  20. BIOTIN [Concomitant]
     Active Substance: BIOTIN
     Indication: HAIR DISORDER
     Dosage: FOR 2 YEARS
     Route: 065
  21. ASPIRIN. [Concomitant]
     Active Substance: ASPIRIN
     Indication: ARTERIAL BYPASS OPERATION
     Dosage: FROM 3.5-4 YEARS
     Route: 065

REACTIONS (3)
  - Product use issue [Unknown]
  - Extra dose administered [Unknown]
  - Drug ineffective [Not Recovered/Not Resolved]
